FAERS Safety Report 9801192 (Version 6)
Quarter: 2014Q1

REPORT INFORMATION
  Report Type: Report from Study
  Country: KR (occurrence: KR)
  Receive Date: 20140107
  Receipt Date: 20140314
  Transmission Date: 20141002
  Serious: Yes (Hospitalization)
  Sender: FDA-Public Use
  Company Number: KR-JNJFOC-20140100353

PATIENT
  Age: 6 Year
  Sex: Female

DRUGS (24)
  1. REMICADE [Suspect]
     Indication: CROHN^S DISEASE
     Route: 042
     Dates: end: 20131111
  2. REMICADE [Suspect]
     Indication: CROHN^S DISEASE
     Route: 042
     Dates: start: 20130705, end: 20130705
  3. REMICADE [Suspect]
     Indication: CROHN^S DISEASE
     Route: 042
     Dates: start: 20131223, end: 20131223
  4. REMICADE [Suspect]
     Indication: CROHN^S DISEASE
     Route: 042
     Dates: start: 20130812, end: 20130812
  5. REMICADE [Suspect]
     Indication: CROHN^S DISEASE
     Route: 042
     Dates: start: 20130719, end: 20130719
  6. REMICADE [Suspect]
     Indication: COLITIS ULCERATIVE
     Route: 042
     Dates: start: 20130812, end: 20130812
  7. REMICADE [Suspect]
     Indication: COLITIS ULCERATIVE
     Route: 042
     Dates: start: 20131223, end: 20131223
  8. REMICADE [Suspect]
     Indication: COLITIS ULCERATIVE
     Route: 042
     Dates: end: 20131111
  9. REMICADE [Suspect]
     Indication: COLITIS ULCERATIVE
     Route: 042
     Dates: start: 20130719, end: 20130719
  10. REMICADE [Suspect]
     Indication: COLITIS ULCERATIVE
     Route: 042
     Dates: start: 20130705, end: 20130705
  11. AZATHIOPRINE PCH [Concomitant]
     Indication: CROHN^S DISEASE
     Dosage: FREQUENCY : 1
     Route: 048
     Dates: start: 20110901, end: 20110921
  12. AZATHIOPRINE PCH [Concomitant]
     Indication: CROHN^S DISEASE
     Dosage: FREQUENCY : 1
     Route: 048
     Dates: start: 20110922, end: 20120606
  13. AZATHIOPRINE PCH [Concomitant]
     Indication: CROHN^S DISEASE
     Dosage: FREQUENCY : 1
     Route: 048
     Dates: start: 20120607, end: 20131001
  14. AZATHIOPRINE PCH [Concomitant]
     Indication: CROHN^S DISEASE
     Dosage: FREQUENCY : 1
     Route: 048
     Dates: start: 20121002
  15. AZATHIOPRINE PCH [Concomitant]
     Indication: CROHN^S DISEASE
     Dosage: FREQUENCY : 1
     Route: 048
     Dates: start: 20110818, end: 20110831
  16. SOLONDO [Concomitant]
     Indication: CROHN^S DISEASE
     Dosage: FREQUENCY : 1
     Route: 048
     Dates: start: 20130517, end: 20130522
  17. SOLONDO [Concomitant]
     Indication: CROHN^S DISEASE
     Dosage: FREQUENCY : 2
     Route: 048
     Dates: start: 20130523, end: 20130610
  18. SOLONDO [Concomitant]
     Indication: CROHN^S DISEASE
     Dosage: FREQUENCY : 2
     Route: 048
     Dates: start: 20130424, end: 20130516
  19. MESALAZINE [Concomitant]
     Indication: CROHN^S DISEASE
     Dosage: FREQUENCY: 2
     Route: 048
     Dates: start: 20100715, end: 20121003
  20. MESALAZINE [Concomitant]
     Indication: CROHN^S DISEASE
     Dosage: FREQUENCY: 2
     Route: 048
     Dates: start: 20080430, end: 20100714
  21. MESALAZINE [Concomitant]
     Indication: CROHN^S DISEASE
     Dosage: FREQUENCY: 2
     Route: 048
     Dates: start: 20121004, end: 20130805
  22. FOLIC ACID [Concomitant]
     Indication: VITAMIN SUPPLEMENTATION
     Dosage: FREQUENCY: 1
     Route: 048
     Dates: start: 20130719
  23. ALVITYL [Concomitant]
     Indication: VITAMIN SUPPLEMENTATION
     Dosage: FREQUENCY: 2
     Route: 048
     Dates: start: 20131113
  24. FERRIC HYDROXIDE POLYMALTOSE COMPLEX [Concomitant]
     Indication: MINERAL SUPPLEMENTATION
     Route: 048
     Dates: start: 20130719

REACTIONS (8)
  - Female genital tract fistula [Recovering/Resolving]
  - Oral candidiasis [Recovered/Resolved]
  - Crohn^s disease [Recovered/Resolved]
  - Enteritis [Recovered/Resolved]
  - Pyrexia [Recovered/Resolved]
  - Nasal congestion [Recovered/Resolved]
  - Diarrhoea haemorrhagic [Recovered/Resolved]
  - Middle ear effusion [Recovered/Resolved]
